FAERS Safety Report 6871991-4 (Version None)
Quarter: 2010Q3

REPORT INFORMATION
  Report Type: 
  Country: None (occurrence: None)
  Receive Date: 20100723
  Receipt Date: 20100713
  Transmission Date: 20110219
  Serious: Yes (Other)
  Sender: FDA-Public Use
  Company Number: US-PFIZER INC-2010088042

PATIENT
  Sex: Female
  Weight: 88.889 kg

DRUGS (25)
  1. LYRICA [Suspect]
     Indication: DIABETIC NEUROPATHY
     Dosage: 50 MG IN THE MORNING, 100MG IN THE EVENING
     Route: 048
     Dates: start: 20070101
  2. ACETAMINOPHEN AND HYDROCODONE BITARTRATE [Concomitant]
     Dosage: UNK, AS NEEDED
  3. NOVOLOG [Concomitant]
     Indication: DIABETES MELLITUS
     Dosage: UNK
  4. LANTUS [Concomitant]
     Indication: DIABETES MELLITUS
     Dosage: 30 IU, AT NIGHT
  5. NORVASC [Concomitant]
     Indication: HYPERTENSION
     Dosage: 10 MG, 1X/DAY
  6. ZETIA [Concomitant]
     Indication: BLOOD CHOLESTEROL INCREASED
     Dosage: 10 MG, 1X/DAY
  7. ALLEGRA [Concomitant]
     Dosage: 180 MG, AT NIGHT
  8. HYOSCYAMINE [Concomitant]
     Indication: DIARRHOEA
     Dosage: UNK, 2X/DAY
  9. CARISOPRODOL [Concomitant]
     Indication: PAIN
     Dosage: UNK
  10. SYNTHROID [Concomitant]
     Dosage: UNK
  11. ATENOLOL [Concomitant]
     Dosage: UNK
  12. HYDROCHLOROTHIAZIDE [Concomitant]
     Dosage: UNK
  13. NEXIUM [Concomitant]
     Dosage: UNK
  14. FUROSEMIDE [Concomitant]
     Dosage: UNK
  15. TRAMADOL [Concomitant]
     Dosage: UNK
  16. LISINOPRIL [Concomitant]
     Dosage: UNK
  17. SIMVASTATIN [Concomitant]
     Dosage: UNK
  18. CYCLOSPORINE [Concomitant]
     Indication: MACULAR DEGENERATION
     Dosage: UNK
  19. SYSTANE [Concomitant]
     Indication: MACULAR DEGENERATION
     Dosage: UNK
  20. LOVAZA [Concomitant]
     Dosage: 3000 UNITS, ONCE A DAY
  21. ACETYLSALICYLIC ACID [Concomitant]
     Dosage: 325 MG, 1X/DAY
  22. GARLIC [Concomitant]
     Dosage: 1000 MG, UNK
  23. BLACK COHOSH [Concomitant]
     Indication: MENOPAUSE
     Dosage: UNK
  24. TURMERIC [Concomitant]
     Dosage: UNK
  25. MULTI-VITAMINS [Concomitant]
     Dosage: UNK

REACTIONS (4)
  - ACCIDENT [None]
  - LUNG NEOPLASM MALIGNANT [None]
  - NARCOLEPSY [None]
  - PERIORBITAL HAEMATOMA [None]
